FAERS Safety Report 10331645 (Version 1)
Quarter: 2014Q3

REPORT INFORMATION
  Report Type: Spontaneous
  Country: US (occurrence: None)
  Receive Date: 20140721
  Receipt Date: 20140721
  Transmission Date: 20150326
  Serious: No
  Sender: FDA-Public Use
  Company Number: None

PATIENT

DRUGS (2)
  1. METFORMIN HCL [Suspect]
     Active Substance: METFORMIN HYDROCHLORIDE
  2. LITHIUM CARBONATE. [Suspect]
     Active Substance: LITHIUM CARBONATE

REACTIONS (3)
  - Product packaging confusion [None]
  - Intercepted drug administration error [None]
  - Product label confusion [None]
